FAERS Safety Report 8083538-8 (Version None)
Quarter: 2012Q1

REPORT INFORMATION
  Report Type: 
  Country: None (occurrence: None)
  Receive Date: 20120127
  Receipt Date: 20110117
  Transmission Date: 20120608
  Serious: No
  Sender: FDA-Public Use
  Company Number: US-ABBOTT-11P-163-0698223-00

PATIENT
  Age: 55 Year
  Sex: Female

DRUGS (7)
  1. HUMIRA [Suspect]
     Indication: RHEUMATOID ARTHRITIS
  2. LANSOPRAZOLE [Concomitant]
     Indication: GASTRIC DISORDER
  3. FOLIC ACID [Concomitant]
     Indication: PRODUCT USED FOR UNKNOWN INDICATION
  4. MULTI-VITAMIN [Concomitant]
     Indication: PRODUCT USED FOR UNKNOWN INDICATION
  5. CLARITIN [Concomitant]
     Indication: HYPERSENSITIVITY
  6. METHOTREXATE [Concomitant]
     Indication: PRODUCT USED FOR UNKNOWN INDICATION
     Dosage: 3 TABLETS WEEKLY
  7. CLARITIN [Concomitant]
     Indication: SINUSITIS

REACTIONS (7)
  - RHEUMATOID ARTHRITIS [None]
  - NECK PAIN [None]
  - INJECTION SITE PAIN [None]
  - ARTHRALGIA [None]
  - INJECTION SITE ERYTHEMA [None]
  - INCORRECT DOSE ADMINISTERED BY DEVICE [None]
  - DEVICE MALFUNCTION [None]
